FAERS Safety Report 17736138 (Version 2)
Quarter: 2020Q2

REPORT INFORMATION
  Report Type: Spontaneous
  Country: CH (occurrence: CH)
  Receive Date: 20200501
  Receipt Date: 20200521
  Transmission Date: 20200714
  Serious: Yes (Other)
  Sender: FDA-Public Use
  Company Number: CH-BIOGEN-2020BI00867250

PATIENT
  Age: 26 Year
  Sex: Female
  Weight: 71 kg

DRUGS (1)
  1. TYSABRI [Suspect]
     Active Substance: NATALIZUMAB
     Indication: RELAPSING-REMITTING MULTIPLE SCLEROSIS
     Route: 042
     Dates: start: 20191025

REACTIONS (2)
  - Multiple sclerosis relapse [Unknown]
  - Myelitis [Unknown]

NARRATIVE: CASE EVENT DATE: 202004
